FAERS Safety Report 9888615 (Version 2)
Quarter: 2014Q1

REPORT INFORMATION
  Report Type: Report from Study
  Country: US (occurrence: US)
  Receive Date: 20140211
  Receipt Date: 20140211
  Transmission Date: 20141002
  Serious: Yes (Hospitalization, Other)
  Sender: FDA-Public Use
  Company Number: US-ABBVIE-13P-163-1139694-00

PATIENT
  Age: 49 Year
  Sex: Male

DRUGS (11)
  1. HUMIRA [Suspect]
     Indication: RHEUMATOID ARTHRITIS
     Dates: start: 201010
  2. LORTAB [Suspect]
     Indication: PRODUCT USED FOR UNKNOWN INDICATION
  3. XANAX [Concomitant]
     Indication: PRODUCT USED FOR UNKNOWN INDICATION
     Dosage: 3 TIMES A DAY AS NEEDED
  4. PENTASA [Concomitant]
     Indication: PRODUCT USED FOR UNKNOWN INDICATION
  5. IMURAN [Concomitant]
     Indication: PRODUCT USED FOR UNKNOWN INDICATION
  6. PHENERGAN [Concomitant]
     Indication: PRODUCT USED FOR UNKNOWN INDICATION
     Dosage: 2 TABLETS PER DAY AS NEEDED
  7. LOMOTIL [Concomitant]
     Indication: PRODUCT USED FOR UNKNOWN INDICATION
     Dosage: 3-4 TABLETS PER DAY AS NEEDED
  8. BONIVA [Concomitant]
     Indication: PRODUCT USED FOR UNKNOWN INDICATION
  9. ALBUTEROL [Concomitant]
     Indication: PRODUCT USED FOR UNKNOWN INDICATION
     Route: 055
  10. OXYCONTIN [Concomitant]
     Indication: PRODUCT USED FOR UNKNOWN INDICATION
     Dosage: TWICE A DAY
  11. OXYCONTIN [Concomitant]

REACTIONS (15)
  - Small intestinal obstruction [Unknown]
  - Pneumonia [Unknown]
  - Joint swelling [Not Recovered/Not Resolved]
  - Macule [Unknown]
  - Pain of skin [Unknown]
  - Asthma [Unknown]
  - Dyspnoea [Unknown]
  - Urinary tract infection [Unknown]
  - Orchitis [Unknown]
  - Nodule [Unknown]
  - Vomiting [Unknown]
  - Feeling hot [Unknown]
  - Anxiety [Unknown]
  - Pain [Unknown]
  - Drug ineffective [Unknown]
